FAERS Safety Report 4801878-X (Version None)
Quarter: 2005Q4

REPORT INFORMATION
  Report Type: 
  Country: None (occurrence: None)
  Receive Date: 20051011
  Receipt Date: 20050922
  Transmission Date: 20060501
  Serious: Yes (Hospitalization)
  Sender: FDA-Public Use
  Company Number: PHEH2005US10534

PATIENT
  Sex: Male

DRUGS (1)
  1. VISUDYNE [Suspect]

REACTIONS (1)
  - THROMBOSIS [None]
